FAERS Safety Report 6424884-0 (Version None)
Quarter: 2009Q4

REPORT INFORMATION
  Report Type: 
  Country: None (occurrence: None)
  Receive Date: 20091103
  Receipt Date: 20091021
  Transmission Date: 20100525
  Serious: Yes (Hospitalization)
  Sender: FDA-Public Use
  Company Number: DE-ELI_LILLY_AND_COMPANY-DE200910005402

PATIENT
  Age: 55 Year
  Sex: Male

DRUGS (2)
  1. FORTEO [Suspect]
     Indication: OSTEOPOROSIS
     Dosage: 20 UG, UNKNOWN
     Route: 065
     Dates: start: 20090416
  2. CORTISONE [Concomitant]
     Dosage: 40 MG, UNKNOWN
     Route: 065

REACTIONS (1)
  - SPINAL FRACTURE [None]
